FAERS Safety Report 20073785 (Version 1)
Quarter: 2021Q4

REPORT INFORMATION
  Report Type: Spontaneous
  Country: US (occurrence: None)
  Receive Date: 20211112
  Receipt Date: 20211112
  Transmission Date: 20220303
  Serious: No
  Sender: FDA-Public Use
  Company Number: None

PATIENT
  Age: 92 Year
  Sex: Male

DRUGS (1)
  1. PROMACTA [Suspect]
     Active Substance: ELTROMBOPAG OLAMINE
     Indication: Immune thrombocytopenia
     Dosage: FREQUENCY : EVERY OTHER DAY;?
     Route: 048
     Dates: start: 20180907, end: 20211101

REACTIONS (9)
  - Sepsis [None]
  - Citrobacter infection [None]
  - Urinary tract infection [None]
  - Clostridium difficile colitis [None]
  - Pulmonary oedema [None]
  - Atrial fibrillation [None]
  - Blood pressure decreased [None]
  - Haematuria [None]
  - Platelet count decreased [None]

NARRATIVE: CASE EVENT DATE: 20211109
